FAERS Safety Report 7521606-7 (Version None)
Quarter: 2011Q2

REPORT INFORMATION
  Report Type: 
  Country: None (occurrence: None)
  Receive Date: 20110524
  Receipt Date: 20110517
  Transmission Date: 20111010
  Serious: Yes (Other)
  Sender: FDA-Public Use
  Company Number: ACO_23094_2011

PATIENT
  Age: 60 Year
  Sex: Female

DRUGS (6)
  1. CALCIUM (CALCIUM) [Concomitant]
  2. BACLOFEN [Concomitant]
  3. AMPYRE (DALFAMPRIDINE) TABLET, 10MG [Suspect]
     Indication: PRODUCT USED FOR UNKNOWN INDICATION
     Dosage: 10MG, BID , ORAL
     Route: 048
     Dates: start: 20100601
  4. ERGOCALCIFEROL [Concomitant]
  5. MULTIVITAMIN/00831701 (VITAMINS NOS) [Concomitant]
  6. GABAPENTIN [Concomitant]

REACTIONS (1)
  - RENAL CANCER [None]
